FAERS Safety Report 7262740-9 (Version None)
Quarter: 2011Q1

REPORT INFORMATION
  Report Type: 
  Country: None (occurrence: None)
  Receive Date: 20110130
  Receipt Date: 20100913
  Transmission Date: 20110831
  Serious: No
  Sender: FDA-Public Use
  Company Number: US-ABBOTT-10P-163-0670624-00

PATIENT
  Age: 56 Year
  Sex: Female

DRUGS (2)
  1. HUMIRA [Suspect]
     Indication: RHEUMATOID ARTHRITIS
     Dates: start: 20090401, end: 20100801
  2. WELLBUTRIN [Concomitant]
     Indication: MENOPAUSE
     Route: 048
     Dates: start: 20080101

REACTIONS (1)
  - NASOPHARYNGITIS [None]
